FAERS Safety Report 14980600 (Version 2)
Quarter: 2018Q2

REPORT INFORMATION
  Report Type: Spontaneous
  Country: JP (occurrence: JP)
  Receive Date: 20180606
  Receipt Date: 20180614
  Transmission Date: 20180711
  Serious: Yes (Other)
  Sender: FDA-Public Use
  Company Number: JP-MYLANLABS-2018M1038565

PATIENT
  Age: 8 Decade
  Sex: Male

DRUGS (2)
  1. CISPLATIN. [Suspect]
     Active Substance: CISPLATIN
     Indication: ADENOCARCINOMA GASTRIC
     Dosage: 60 MILLIGRAM(S)/SQ. METER
     Route: 065
  2. GIMERACIL;OTERACIL;TEGAFUR [Suspect]
     Active Substance: GIMERACIL\OTERACIL\TEGAFUR
     Indication: ADENOCARCINOMA GASTRIC
     Dosage: 80 MILLIGRAM(S)/SQ. METER
     Route: 065

REACTIONS (4)
  - Abdominal abscess [Unknown]
  - Gastric perforation [Recovered/Resolved]
  - Peritonitis [Recovering/Resolving]
  - Tumour perforation [Recovered/Resolved]
